FAERS Safety Report 5923806-6 (Version None)
Quarter: 2008Q3

REPORT INFORMATION
  Report Type: 
  Country: None (occurrence: None)
  Receive Date: 20080909
  Receipt Date: 20071010
  Transmission Date: 20090109
  Serious: Yes (Death)
  Sender: FDA-Public Use
  Company Number: 163-21880-07081254

PATIENT
  Age: 64 Year
  Sex: Male

DRUGS (2)
  1. THALOMID [Suspect]
     Indication: MULTIPLE MYELOMA
     Dosage: 150 - 200MG, DAILY, ORAL ; 50 - 200MG, DAILY, ORAL
     Route: 048
     Dates: start: 20050816, end: 20060101
  2. THALOMID [Suspect]
     Indication: MULTIPLE MYELOMA
     Dosage: 150 - 200MG, DAILY, ORAL ; 50 - 200MG, DAILY, ORAL
     Route: 048
     Dates: start: 20061219, end: 20070701

REACTIONS (1)
  - MULTIPLE MYELOMA [None]
